FAERS Safety Report 16884984 (Version 3)
Quarter: 2020Q1

REPORT INFORMATION
  Report Type: Spontaneous
  Country: US (occurrence: US)
  Receive Date: 20191004
  Receipt Date: 20200124
  Transmission Date: 20200409
  Serious: No
  Sender: FDA-Public Use
  Company Number: US-PFIZER INC-2017135780

PATIENT
  Age: 77 Year
  Sex: Female
  Weight: 72 kg

DRUGS (2)
  1. XELJANZ XR [Suspect]
     Active Substance: TOFACITINIB CITRATE
     Indication: ARTHROPATHY
  2. XELJANZ XR [Suspect]
     Active Substance: TOFACITINIB CITRATE
     Indication: RHEUMATOID ARTHRITIS
     Dosage: 11 MG, ALTERNATE DAY

REACTIONS (3)
  - Liver function test abnormal [Unknown]
  - Off label use [Unknown]
  - Hypoacusis [Unknown]
